FAERS Safety Report 7635687-3 (Version None)
Quarter: 2011Q3

REPORT INFORMATION
  Report Type: 
  Country: None (occurrence: None)
  Receive Date: 20110718
  Receipt Date: 20110630
  Transmission Date: 20111222
  Serious: Yes (Hospitalization, Other)
  Sender: FDA-Public Use
  Company Number: 2011EG0142

PATIENT
  Age: 2 Year
  Sex: Female

DRUGS (1)
  1. ORFADIN [Suspect]
     Indication: TYROSINAEMIA
     Dosage: 0,55 MG/KG (0,55 MG/KG,1 IN 1 D)
     Dates: start: 20061001

REACTIONS (2)
  - LIVER TRANSPLANT [None]
  - HEPATIC CIRRHOSIS [None]
